FAERS Safety Report 8069503-5 (Version None)
Quarter: 2012Q1

REPORT INFORMATION
  Report Type: 
  Country: None (occurrence: None)
  Receive Date: 20120125
  Receipt Date: 20120118
  Transmission Date: 20120608
  Serious: Yes (Other)
  Sender: FDA-Public Use
  Company Number: TR-US-EMD SERONO, INC.-7107577

PATIENT
  Sex: Female
  Weight: 54 kg

DRUGS (4)
  1. AMITRIPTYLINE HCL [Suspect]
     Indication: ANTIDEPRESSANT THERAPY
     Route: 048
     Dates: end: 20111221
  2. DIDERAL [Suspect]
     Indication: HYPERTENSION
     Route: 048
     Dates: end: 20111221
  3. REBIF [Suspect]
     Indication: MULTIPLE SCLEROSIS
     Route: 058
     Dates: start: 20090601, end: 20111221
  4. APIKOBAL [Suspect]
     Indication: VITAMIN SUPPLEMENTATION
     Route: 048
     Dates: end: 20111221

REACTIONS (3)
  - OVARIAN CYST [None]
  - GASTRIC CANCER [None]
  - MENSTRUATION IRREGULAR [None]
